FAERS Safety Report 9631220 (Version 2)
Quarter: 2013Q4

REPORT INFORMATION
  Report Type: Spontaneous
  Country: US (occurrence: US)
  Receive Date: 20131018
  Receipt Date: 20131203
  Transmission Date: 20140711
  Serious: Yes (Hospitalization, Other)
  Sender: FDA-Public Use
  Company Number: US-BAYER-2013-124258

PATIENT
  Age: 30 Year
  Sex: Female
  Weight: 64.85 kg

DRUGS (12)
  1. YAZ [Suspect]
  2. YASMIN [Suspect]
     Dosage: UNK
     Dates: start: 20020913
  3. VICODIN [Concomitant]
     Dosage: UNK
     Dates: start: 20021002
  4. AUGMENTIN [Concomitant]
     Dosage: UNK
     Dates: start: 20021003
  5. TESTOSTERONE [Concomitant]
  6. MORPHINE [Concomitant]
     Indication: PAIN
  7. PERCOCET [Concomitant]
  8. KEFLEX [Concomitant]
  9. ORTHO TRI-CYCLEN [Concomitant]
  10. ROCEPHIN [Concomitant]
     Dosage: 1 G, UNK
     Route: 042
  11. FENTANYL [Concomitant]
     Route: 042
  12. ZOFRAN [Concomitant]
     Dosage: 4 MG, UNK
     Route: 042

REACTIONS (8)
  - Thrombophlebitis superficial [None]
  - Deep vein thrombosis [Recovered/Resolved]
  - Injury [None]
  - Pain [None]
  - General physical health deterioration [None]
  - Emotional distress [None]
  - Pain [None]
  - Anxiety [None]
